FAERS Safety Report 8502949-7 (Version None)
Quarter: 2012Q3

REPORT INFORMATION
  Report Type: 
  Country: None (occurrence: None)
  Receive Date: 20120711
  Receipt Date: 20120704
  Transmission Date: 20120928
  Serious: Yes (Other)
  Sender: FDA-Public Use
  Company Number: BR-PFIZER INC-2012152256

PATIENT
  Sex: Male

DRUGS (1)
  1. TOLTERODINE TARTRATE [Suspect]
     Dosage: 4 MG, UNK
     Route: 048

REACTIONS (4)
  - ACNE [None]
  - FLUSHING [None]
  - RASH PUSTULAR [None]
  - PRURITUS [None]
